FAERS Safety Report 23859479 (Version 2)
Quarter: 2024Q2

REPORT INFORMATION
  Report Type: Other
  Country: CA (occurrence: None)
  Receive Date: 20240515
  Receipt Date: 20240516
  Transmission Date: 20240716
  Serious: No
  Sender: FDA-Public Use
  Company Number: CA-ROCHE-3559702

PATIENT
  Sex: Male

DRUGS (3)
  1. OCREVUS [Suspect]
     Active Substance: OCRELIZUMAB
     Indication: Relapsing-remitting multiple sclerosis
     Dosage: THEN 600 MG EVERY 6 MONTHS
     Route: 042
     Dates: start: 20220322
  2. AMOXICLAV [AMOXICILLIN;CLAVULANIC ACID] [Concomitant]
     Dosage: 125 MG
  3. AMOXICLAV [AMOXICILLIN;CLAVULANIC ACID] [Concomitant]

REACTIONS (1)
  - Diverticulitis [Recovering/Resolving]
